FAERS Safety Report 21349186 (Version 1)
Quarter: 2022Q3

REPORT INFORMATION
  Report Type: Spontaneous
  Country: ES (occurrence: ES)
  Receive Date: 20220919
  Receipt Date: 20220919
  Transmission Date: 20221027
  Serious: Yes (Other)
  Sender: FDA-Public Use
  Company Number: None

PATIENT
  Age: 29 Year
  Sex: Female

DRUGS (1)
  1. CIMZIA [Suspect]
     Active Substance: CERTOLIZUMAB PEGOL
     Indication: Rheumatoid arthritis
     Dosage: 200 MG / 14 D?AS
     Route: 058
     Dates: start: 20201112, end: 20210706

REACTIONS (1)
  - Paradoxical psoriasis [Recovering/Resolving]

NARRATIVE: CASE EVENT DATE: 20210615
